FAERS Safety Report 4772838-2 (Version None)
Quarter: 2005Q3

REPORT INFORMATION
  Report Type: 
  Country: None (occurrence: None)
  Receive Date: 20050919
  Receipt Date: 20050908
  Transmission Date: 20060218
  Serious: Yes (Hospitalization)
  Sender: FDA-Public Use
  Company Number: FR-JNJFOC-20050904060

PATIENT
  Age: 57 Year
  Sex: Male

DRUGS (13)
  1. TOPALGIC [Suspect]
     Route: 048
  2. SKENAN [Suspect]
     Route: 048
  3. COLTRAMYL [Concomitant]
     Route: 048
  4. FELDENE [Concomitant]
     Route: 048
  5. EFFERALGAN CODEINE [Concomitant]
     Route: 048
  6. EFFERALGAN CODEINE [Concomitant]
     Route: 048
  7. COTAREG [Concomitant]
     Route: 048
  8. COTAREG [Concomitant]
     Route: 048
  9. DETENSIEL [Concomitant]
     Indication: CARDIOMYOPATHY
     Route: 048
  10. TAHOR [Concomitant]
     Route: 048
  11. LYSANXIA [Concomitant]
     Route: 048
  12. HARPAGOPHYTUM [Concomitant]
     Indication: POLYARTHRITIS
     Route: 048
  13. NEXIUM [Concomitant]
     Route: 065

REACTIONS (2)
  - INTERSTITIAL LUNG DISEASE [None]
  - RESPIRATORY FAILURE [None]
